FAERS Safety Report 21042528 (Version 1)
Quarter: 2022Q3

REPORT INFORMATION
  Report Type: Spontaneous
  Country: US (occurrence: None)
  Receive Date: 20220701
  Receipt Date: 20220701
  Transmission Date: 20221027
  Serious: No
  Sender: FDA-Public Use
  Company Number: None

PATIENT
  Sex: Female

DRUGS (1)
  1. ILARIS [Suspect]
     Active Substance: CANAKINUMAB
     Indication: Cryopyrin associated periodic syndrome
     Dosage: FREQUENCY : MONTHLY;?
     Route: 058
     Dates: start: 202205, end: 20220613

REACTIONS (2)
  - Supraventricular tachycardia [None]
  - Therapy cessation [None]
